FAERS Safety Report 6474947-9 (Version None)
Quarter: 2009Q4

REPORT INFORMATION
  Report Type: 
  Country: None (occurrence: None)
  Receive Date: 20091123
  Receipt Date: 20090924
  Transmission Date: 20100525
  Serious: No
  Sender: FDA-Public Use
  Company Number: 8052647

PATIENT
  Age: 19 Year
  Sex: Male
  Weight: 56.8 kg

DRUGS (8)
  1. CIMZIA [Suspect]
     Indication: CROHN'S DISEASE
     Dosage: 400 MG SC
     Route: 058
     Dates: start: 20090507
  2. PANTOPRAZOLE [Concomitant]
  3. PENTASA [Concomitant]
  4. OMEGA /00694402/, 1500 MG/ [Concomitant]
  5. ROWASA [Concomitant]
  6. PREDNISONE [Concomitant]
  7. LEXAPRO [Concomitant]
  8. SILVER BIOTIC [Concomitant]

REACTIONS (1)
  - HEART RATE INCREASED [None]
